FAERS Safety Report 23925978 (Version 1)
Quarter: 2024Q2

REPORT INFORMATION
  Report Type: Spontaneous
  Country: CN (occurrence: CN)
  Receive Date: 20240531
  Receipt Date: 20240531
  Transmission Date: 20240716
  Serious: Yes (Other)
  Sender: FDA-Public Use
  Company Number: CN-009507513-2405CHN008780

PATIENT
  Age: 96 Year
  Sex: Female
  Weight: 45 kg

DRUGS (1)
  1. CILASTATIN SODIUM\IMIPENEM [Suspect]
     Active Substance: CILASTATIN SODIUM\IMIPENEM
     Indication: Cholecystitis
     Dosage: 0.5 G, BID
     Route: 041
     Dates: start: 20240518, end: 20240519

REACTIONS (3)
  - Muscle twitching [Recovering/Resolving]
  - Epilepsy [Recovering/Resolving]
  - Blood pressure abnormal [Unknown]

NARRATIVE: CASE EVENT DATE: 20240519
